FAERS Safety Report 15355659 (Version 3)
Quarter: 2019Q1

REPORT INFORMATION
  Report Type: Spontaneous
  Country: US (occurrence: US)
  Receive Date: 20180906
  Receipt Date: 20190111
  Transmission Date: 20190417
  Serious: Yes (Hospitalization)
  Sender: FDA-Public Use
  Company Number: US-B.I. PHARMACEUTICALS,INC./RIDGEFIELD-2018-BI-044389

PATIENT
  Age: 75 Year
  Sex: Female
  Weight: 100.7 kg

DRUGS (34)
  1. REMERON [Concomitant]
     Active Substance: MIRTAZAPINE
     Indication: PRODUCT USED FOR UNKNOWN INDICATION
     Route: 048
  2. OMEGA 3 FISH OIL [Concomitant]
     Active Substance: FISH OIL\OMEGA-3 FATTY ACIDS
     Indication: PRODUCT USED FOR UNKNOWN INDICATION
     Dosage: 300-1000 MG,TAKE 1 CAP BY MOUTH 3 TIMES DAILY.
     Route: 048
  3. COREG [Concomitant]
     Active Substance: CARVEDILOL
     Indication: PRODUCT USED FOR UNKNOWN INDICATION
     Route: 048
  4. QVAR [Concomitant]
     Active Substance: BECLOMETHASONE DIPROPIONATE
     Indication: PRODUCT USED FOR UNKNOWN INDICATION
     Dosage: 80 MCQ/ACTUATION AEROSOL,TAKE 2 PUFFS BY INHALATION 2 TIMES DAILY
     Route: 055
  5. NORVASC [Concomitant]
     Active Substance: AMLODIPINE BESYLATE
     Indication: PRODUCT USED FOR UNKNOWN INDICATION
     Route: 048
  6. NORCO [Concomitant]
     Active Substance: ACETAMINOPHEN\HYDROCODONE BITARTRATE
     Indication: PRODUCT USED FOR UNKNOWN INDICATION
     Dosage: 5-325 MG TABLET,TAKE 1 TAB BY MOUTH 2 TIMES DAILY.
     Route: 048
  7. BAYER ASPIRIN [Concomitant]
     Active Substance: ASPIRIN
     Indication: PRODUCT USED FOR UNKNOWN INDICATION
     Dosage: CHEWABLE,TAKE 81 MG BY MOUTH DAILY.
     Route: 048
  8. VESICARE [Concomitant]
     Active Substance: SOLIFENACIN SUCCINATE
     Indication: PRODUCT USED FOR UNKNOWN INDICATION
     Route: 048
  9. SINEMET [Concomitant]
     Active Substance: CARBIDOPA\LEVODOPA
     Indication: PRODUCT USED FOR UNKNOWN INDICATION
     Dosage: 25-100 MG TABLET
     Route: 048
  10. HYGROTON [Concomitant]
     Active Substance: CHLORTHALIDONE
     Indication: PRODUCT USED FOR UNKNOWN INDICATION
     Dosage: TAKE 12.5 MG BY MOUTH DAILY.
     Route: 048
  11. WELCHOL [Concomitant]
     Active Substance: COLESEVELAM HYDROCHLORIDE
     Indication: PRODUCT USED FOR UNKNOWN INDICATION
     Route: 048
  12. MOBIC [Concomitant]
     Active Substance: MELOXICAM
     Indication: PRODUCT USED FOR UNKNOWN INDICATION
     Route: 048
  13. LEVEMIR [Concomitant]
     Active Substance: INSULIN DETEMIR
     Indication: PRODUCT USED FOR UNKNOWN INDICATION
     Dosage: 100 UNIT/ML INSULIN PEN
     Route: 058
  14. ATIVAN [Concomitant]
     Active Substance: LORAZEPAM
     Indication: PRODUCT USED FOR UNKNOWN INDICATION
     Dosage: TAKE 0.5 MG BY MOUTH 3 TIMES DAILY.
     Route: 048
  15. IMDUR [Concomitant]
     Active Substance: ISOSORBIDE MONONITRATE
     Indication: PRODUCT USED FOR UNKNOWN INDICATION
     Dosage: EXTENDED RELEASE 24 HOUR,TAKE 120 MG BY MOUTH 2 TIMES DAILY. AM AND NOON
     Route: 048
  16. BUSPAR [Concomitant]
     Active Substance: BUSPIRONE HYDROCHLORIDE
     Indication: PRODUCT USED FOR UNKNOWN INDICATION
     Route: 048
  17. LEVEMIR [Concomitant]
     Active Substance: INSULIN DETEMIR
     Dosage: 100 UNIT/ML INSULIN PEN
     Route: 058
  18. PRAVACHOL [Concomitant]
     Active Substance: PRAVASTATIN SODIUM
     Indication: PRODUCT USED FOR UNKNOWN INDICATION
     Dosage: TAKE 10 MG BY MOUTH DAILY LATE
     Route: 048
  19. ZYRTEC [Concomitant]
     Active Substance: CETIRIZINE HYDROCHLORIDE
     Indication: PRODUCT USED FOR UNKNOWN INDICATION
     Dosage: TAKE 10 MG BY MOUTH DAILY.
     Route: 048
  20. NITROSTAT [Concomitant]
     Active Substance: NITROGLYCERIN
     Indication: CHEST PAIN
     Dosage: PLACE 0.4 MG UNDER TONGUE EVERY 5 MINUTES AS NEEDED FOR CHEST PAIN
     Route: 060
  21. SOMA [Concomitant]
     Active Substance: CARISOPRODOL
     Indication: PRODUCT USED FOR UNKNOWN INDICATION
     Route: 048
  22. PROTONIX [Concomitant]
     Active Substance: PANTOPRAZOLE SODIUM
     Indication: PRODUCT USED FOR UNKNOWN INDICATION
     Dosage: DELAYED RELEASE (E.C.),TAKE 40 MG BY MOUTH DAILY.
     Route: 048
  23. CORDARONE [Concomitant]
     Active Substance: AMIODARONE HYDROCHLORIDE
     Indication: PRODUCT USED FOR UNKNOWN INDICATION
     Dosage: TAKE 200 MG BY MOUTH DAILY
     Route: 048
  24. RANEXA [Concomitant]
     Active Substance: RANOLAZINE
     Indication: PRODUCT USED FOR UNKNOWN INDICATION
     Dosage: EXTENDED RELEASE 12 HOUR
     Route: 048
  25. ALTACE [Concomitant]
     Active Substance: RAMIPRIL
     Indication: PRODUCT USED FOR UNKNOWN INDICATION
     Route: 048
  26. DESYREL [Concomitant]
     Active Substance: TRAZODONE HYDROCHLORIDE
     Indication: PRODUCT USED FOR UNKNOWN INDICATION
     Dosage: TAKE 150 MG BY MOUTH DAILY AT?BEDTIME.
     Route: 048
  27. GLUCOPHAGE [Concomitant]
     Active Substance: METFORMIN HYDROCHLORIDE
     Indication: PRODUCT USED FOR UNKNOWN INDICATION
     Dosage: TAKE 1,000 MG BY MOUTH 2 TIMES DAILY WITH MEALS.
     Route: 048
  28. TRADJENTA [Concomitant]
     Active Substance: LINAGLIPTIN
     Indication: PRODUCT USED FOR UNKNOWN INDICATION
     Dosage: TAKE 5 MG BY MOUTH DAILY.
     Route: 048
  29. PRADAXA [Suspect]
     Active Substance: DABIGATRAN ETEXILATE MESYLATE
     Indication: ATRIAL FIBRILLATION
     Route: 048
     Dates: start: 20150112, end: 20150516
  30. KLONOPIN [Concomitant]
     Active Substance: CLONAZEPAM
     Indication: ANXIETY
     Dosage: TAKE 1 MG BY MOUTH 2 TIMES DAILY AS NEEDED FOR ANXIETY.
     Route: 048
  31. COMBIVENT RESPIMAT [Concomitant]
     Active Substance: ALBUTEROL SULFATE\IPRATROPIUM BROMIDE
     Indication: WHEEZING
     Dosage: 20-100 MCG/ACTUATION MIST,TAKE 1 PUFF BY INHALATION 4 TIMES DAILY AS NEEDED
     Route: 055
  32. FENOFIBRATE. [Concomitant]
     Active Substance: FENOFIBRATE
     Indication: PRODUCT USED FOR UNKNOWN INDICATION
     Dosage: TAKE 160 MG BY MOUTH DAILY
     Route: 048
  33. PRISTIQ EXTENDED-RELEASE [Concomitant]
     Active Substance: DESVENLAFAXINE SUCCINATE
     Indication: PRODUCT USED FOR UNKNOWN INDICATION
     Dosage: EXTENDED RELEASE 24 HOUR TABLET
     Route: 048
  34. TYLENOL [Concomitant]
     Active Substance: ACETAMINOPHEN
     Indication: PRODUCT USED FOR UNKNOWN INDICATION
     Dosage: TAKE 500 MG BY MOUTH EVERY 6 HOURS AS NEEDED
     Route: 048

REACTIONS (2)
  - Haemorrhagic anaemia [Recovered/Resolved]
  - Haemorrhagic anaemia [Unknown]

NARRATIVE: CASE EVENT DATE: 20150202
